FAERS Safety Report 23643713 (Version 1)
Quarter: 2024Q1

REPORT INFORMATION
  Report Type: Report from Study
  Country: US (occurrence: US)
  Receive Date: 20240318
  Receipt Date: 20240318
  Transmission Date: 20240410
  Serious: No
  Sender: FDA-Public Use
  Company Number: US-ESPERIONTHERAPEUTICS-2023USA00487

PATIENT
  Sex: Female

DRUGS (1)
  1. BEMPEDOIC ACID [Suspect]
     Active Substance: BEMPEDOIC ACID
     Indication: Type V hyperlipidaemia
     Dosage: 180 MILLIGRAM, QD
     Route: 048

REACTIONS (1)
  - Feeling abnormal [Unknown]
